FAERS Safety Report 8538129-9 (Version None)
Quarter: 2012Q3

REPORT INFORMATION
  Report Type: 
  Country: None (occurrence: None)
  Receive Date: 20120725
  Receipt Date: 20120725
  Transmission Date: 20120928
  Serious: Yes (Death, Hospitalization)
  Sender: FDA-Public Use
  Company Number: ES-AMGEN-ESPSP2012044569

PATIENT
  Age: 80 Year
  Sex: Female

DRUGS (4)
  1. ANTIHYPERTENSIVES [Concomitant]
     Indication: HYPERTENSION
  2. PROLIA [Suspect]
     Indication: SENILE OSTEOPOROSIS
     Dosage: UNK
     Route: 058
     Dates: start: 20120529, end: 20120610
  3. CALCIUM CARBONATE [Concomitant]
     Indication: SENILE OSTEOPOROSIS
     Dosage: UNK UNK, QD
     Route: 048
     Dates: end: 20120615
  4. ACTONEL [Concomitant]
     Indication: SENILE OSTEOPOROSIS
     Dosage: 35 MG, QWK
     Route: 048
     Dates: end: 20120615

REACTIONS (2)
  - PAIN IN EXTREMITY [None]
  - ISCHAEMIC STROKE [None]
